FAERS Safety Report 20977878 (Version 1)
Quarter: 2022Q2

REPORT INFORMATION
  Report Type: Spontaneous
  Country: US (occurrence: US)
  Receive Date: 20220618
  Receipt Date: 20220618
  Transmission Date: 20220721
  Serious: No
  Sender: FDA-Public Use
  Company Number: US-BRISTOL-MYERS SQUIBB COMPANY-2022-053085

PATIENT
  Age: 74 Year
  Sex: Male
  Weight: 65.77 kg

DRUGS (13)
  1. REVLIMID [Suspect]
     Active Substance: LENALIDOMIDE
     Indication: Plasma cell myeloma
     Dosage: QD*21 DAYS
     Route: 048
  2. VITAMIN C [Concomitant]
     Active Substance: ASCORBIC ACID
  3. MORPHINE SULFATE [Concomitant]
     Active Substance: MORPHINE SULFATE
  4. FAMOTIDINE [Concomitant]
     Active Substance: FAMOTIDINE
  5. GABAPENTIN [Concomitant]
     Active Substance: GABAPENTIN
  6. DEXAMETHASONE [Concomitant]
     Active Substance: DEXAMETHASONE
  7. METHOCARBAMOL [Concomitant]
     Active Substance: METHOCARBAMOL
  8. FINASTERIDE [Concomitant]
     Active Substance: FINASTERIDE
  9. ASPIRIN [Concomitant]
     Active Substance: ASPIRIN
  10. MULTIVITAMIN MEN 50+ [Concomitant]
  11. COENZYME Q10 [Concomitant]
     Active Substance: DIETARY SUPPLEMENT\UBIDECARENONE
  12. PROBIOTIC BLEND [Concomitant]
  13. MIRALAX MIX IN PAX [Concomitant]

REACTIONS (2)
  - Blister [Unknown]
  - Erythema [Unknown]
